FAERS Safety Report 21058858 (Version 1)
Quarter: 2022Q3

REPORT INFORMATION
  Report Type: Spontaneous
  Country: AU (occurrence: AU)
  Receive Date: 20220708
  Receipt Date: 20220708
  Transmission Date: 20221026
  Serious: No
  Sender: FDA-Public Use
  Company Number: AU-JAZZ-2022-AU-013439

PATIENT
  Sex: Female

DRUGS (1)
  1. LURBINECTEDIN [Suspect]
     Active Substance: LURBINECTEDIN
     Dosage: 4.5 MILLIGRAM
     Route: 042

REACTIONS (1)
  - Therapy change [Unknown]
